FAERS Safety Report 4309369-X (Version None)
Quarter: 2004Q1

REPORT INFORMATION
  Report Type: 
  Country: None (occurrence: None)
  Receive Date: 20040302
  Receipt Date: 20040219
  Transmission Date: 20041129
  Serious: Yes (Other)
  Sender: FDA-Public Use
  Company Number: CA-BRISTOL-MYERS SQUIBB COMPANY-12512745

PATIENT
  Age: 78 Year
  Sex: Male

DRUGS (12)
  1. TEQUIN [Suspect]
     Indication: PNEUMONIA
     Route: 048
     Dates: start: 20031226, end: 20040101
  2. NOVOLIN [Concomitant]
  3. NPH INSULIN [Concomitant]
  4. PANTOLOC [Concomitant]
  5. SPIRONOLACTONE [Concomitant]
  6. LIPITOR [Concomitant]
  7. ALTACE [Concomitant]
  8. HYDRALAZINE HCL [Concomitant]
  9. LASIX [Concomitant]
  10. DILAUDID [Concomitant]
  11. NITRO PATCH [Concomitant]
     Dosage: ON DURING THE DAY AND OFF AT NIGHT
  12. COMBIVENT [Concomitant]
     Dosage: DOSAGE FORM - PUFF
     Route: 055

REACTIONS (1)
  - BLOOD GLUCOSE DECREASED [None]
